FAERS Safety Report 6190775-6 (Version None)
Quarter: 2009Q2

REPORT INFORMATION
  Report Type: 
  Country: None (occurrence: None)
  Receive Date: 20090514
  Receipt Date: 20090508
  Transmission Date: 20091009
  Serious: Yes (Hospitalization, Other)
  Sender: FDA-Public Use
  Company Number: US-ELI_LILLY_AND_COMPANY-US200905001785

PATIENT
  Sex: Female

DRUGS (9)
  1. FORTEO [Suspect]
     Dosage: UNK, UNK
     Dates: start: 20080101, end: 20081006
  2. FORTEO [Suspect]
     Dates: start: 20090313
  3. OXYBUTYNIN [Concomitant]
     Dosage: 20 MG, UNK
  4. CALTRATE /00108001/ [Concomitant]
     Dosage: 200 MG, UNK
  5. RESTASIS [Concomitant]
     Route: 047
  6. ALLEGRA [Concomitant]
  7. TOFRANIL [Concomitant]
  8. PLAQUENIL [Concomitant]
  9. INVEGA [Concomitant]

REACTIONS (3)
  - SURGERY [None]
  - WOUND DEHISCENCE [None]
  - WOUND SECRETION [None]
